FAERS Safety Report 13781309 (Version 2)
Quarter: 2017Q3

REPORT INFORMATION
  Report Type: Spontaneous
  Country: GB (occurrence: GB)
  Receive Date: 20170724
  Receipt Date: 20170726
  Transmission Date: 20171127
  Serious: Yes (Death, Other)
  Sender: FDA-Public Use
  Company Number: GB-IPSEN BIOPHARMACEUTICALS, INC.-2017-07579

PATIENT
  Age: 64 Year
  Sex: Male

DRUGS (3)
  1. SOMATULINE AUTOGEL 120MG [Suspect]
     Active Substance: LANREOTIDE ACETATE
     Indication: NEUROENDOCRINE TUMOUR
     Dosage: 120 MG
     Route: 065
     Dates: start: 2013
  2. AMLODIPINE [Concomitant]
     Active Substance: AMLODIPINE BESYLATE
     Indication: HYPERTENSION
  3. SOMATULINE AUTOGEL 120MG [Suspect]
     Active Substance: LANREOTIDE ACETATE
     Indication: FLUSHING

REACTIONS (11)
  - Disease progression [Unknown]
  - Cardiac failure [Fatal]
  - Metastases to lymph nodes [Unknown]
  - Carcinoid syndrome [Fatal]
  - Condition aggravated [Fatal]
  - Malaise [Unknown]
  - Neoplasm progression [Unknown]
  - Metastases to bone [Unknown]
  - Carcinoid heart disease [Fatal]
  - Ascites [Unknown]
  - Metastases to peritoneum [Unknown]
